FAERS Safety Report 14992742 (Version 1)
Quarter: 2018Q2

REPORT INFORMATION
  Report Type: Spontaneous
  Country: DE (occurrence: DE)
  Receive Date: 20180609
  Receipt Date: 20180609
  Transmission Date: 20180711
  Serious: Yes (Hospitalization)
  Sender: FDA-Public Use
  Company Number: DE-TEVA-2018-DE-903199

PATIENT
  Age: 81 Year
  Sex: Female

DRUGS (5)
  1. VALSARTAN. [Suspect]
     Active Substance: VALSARTAN
     Dosage: 2-0-0-0
     Route: 065
  2. PRAMIPEXOLE. [Suspect]
     Active Substance: PRAMIPEXOLE
     Dosage: 0-0-0-1
     Route: 065
  3. ESIDRIX [Suspect]
     Active Substance: HYDROCHLOROTHIAZIDE
     Dosage: NK MG, 0.5-0-0-0
     Route: 065
  4. LEVOTHYROXINE SODIUM. [Concomitant]
     Active Substance: LEVOTHYROXINE SODIUM
     Dosage: 1.5-0-0-0
     Route: 065
  5. NITRENDIPINE [Suspect]
     Active Substance: NITRENDIPINE
     Dosage: 1-1-0.5-0
     Route: 065

REACTIONS (3)
  - Fall [Unknown]
  - Wound [Unknown]
  - Drug prescribing error [Unknown]
